FAERS Safety Report 20027745 (Version 6)
Quarter: 2022Q1

REPORT INFORMATION
  Report Type: Report from Study
  Country: GB (occurrence: GB)
  Receive Date: 20211103
  Receipt Date: 20220104
  Transmission Date: 20220423
  Serious: Yes (Hospitalization, Other)
  Sender: FDA-Public Use
  Company Number: GB-ROCHE-2897865

PATIENT

DRUGS (65)
  1. PREDNISOLONE [Suspect]
     Active Substance: PREDNISOLONE
     Indication: Diffuse large B-cell lymphoma
     Dosage: 100 MG (100 MG, ON 21/AUG/2021 7:10 AM, RECEIVED MOST RECENT DOSE (100 MG) OF PREDNISOLONE PRIOR TO
     Route: 048
     Dates: start: 20210818
  2. PREDNISOLONE [Suspect]
     Active Substance: PREDNISOLONE
     Dosage: 100 MG (ON 20/AUG/2021 7:10 AM, RECEIVED MOST RECENT DOSE (100 MG) OF PREDNISOLONE PRIOR TO AE AND S
     Route: 048
     Dates: start: 20210816
  3. CYCLOPHOSPHAMIDE [Suspect]
     Active Substance: CYCLOPHOSPHAMIDE
     Indication: Diffuse large B-cell lymphoma
     Dosage: 1600 MG/M2 (EVERY 3 WEEK) (TOTAL VOLUME PRIOR AE 50 ML), ON 17/AUG/2021 AT 5:43 PM TO 6:00 PM, RECEI
     Route: 042
     Dates: start: 20210817
  4. DOXORUBICIN [Suspect]
     Active Substance: DOXORUBICIN
     Indication: Diffuse large B-cell lymphoma
     Dosage: 110 MG/M2 EVERY 3 WEEK ((TOTAL VOLUME PRIOR AE 50 ML), ON 17/AUG/2021 AT 5:15 PM TO 5:30 PM, RECEIVE
     Route: 042
     Dates: start: 20210817
  5. METHYLPREDNISOLONE [Suspect]
     Active Substance: METHYLPREDNISOLONE
     Indication: Diffuse large B-cell lymphoma
     Dosage: 80 MG (ON 17/AUG/2021 10:27 AM, MOST RECENT DOSE (80 MG) OF METHYLPREDNISOLONE PRIOR TO AE AND SAE.)
     Route: 048
     Dates: start: 20210817
  6. RITUXIMAB [Suspect]
     Active Substance: RITUXIMAB
     Indication: Diffuse large B-cell lymphoma
     Dosage: 800 MG/M2, EVERY 3 WEEK ((TOTAL VOLUME PRIOR AE AND SAE 500 ML)ON 17/AUG/2021 11:45 AM TO 4:45 PM, R
     Route: 042
     Dates: start: 20210817
  7. VINCRISTINE [Suspect]
     Active Substance: VINCRISTINE
     Indication: Diffuse large B-cell lymphoma
     Dosage: 2 MG/M2 EVERY 3 WEEKS ((TOTAL VOLUME PRIOR AE AND SAE 50 ML), ON 17/AUG/2021 AT 6:10 PM TO 6:20 PM,
     Route: 042
     Dates: start: 20210817
  8. ACYCLOVIR [Concomitant]
     Active Substance: ACYCLOVIR
     Dosage: UNK (PROPHYLACTIC ANTI-VIRAL)
     Route: 065
     Dates: start: 20210817
  9. ALLOPURINOL [Concomitant]
     Active Substance: ALLOPURINOL
     Dosage: UNK (REDUCE URIC ACID)
     Route: 065
     Dates: start: 20210817
  10. CHLORPHENIRAMINE MALEATE [Concomitant]
     Active Substance: CHLORPHENIRAMINE MALEATE
     Dosage: 10 MG
     Route: 042
     Dates: start: 20210817, end: 20210817
  11. CHLORPHENIRAMINE MALEATE [Concomitant]
     Active Substance: CHLORPHENIRAMINE MALEATE
     Dosage: 10 MG
     Route: 042
     Dates: start: 20210907, end: 20210907
  12. CHLORPHENIRAMINE MALEATE [Concomitant]
     Active Substance: CHLORPHENIRAMINE MALEATE
     Dosage: 10 MG
     Route: 042
     Dates: start: 20210914, end: 20210914
  13. CHLORPHENIRAMINE MALEATE [Concomitant]
     Active Substance: CHLORPHENIRAMINE MALEATE
     Dosage: 10 MG
     Route: 042
     Dates: start: 20210921, end: 20210921
  14. CHLORPHENIRAMINE MALEATE [Concomitant]
     Active Substance: CHLORPHENIRAMINE MALEATE
     Dosage: 10 MG
     Route: 042
     Dates: start: 20210928, end: 20210928
  15. CHLORPHENIRAMINE MALEATE [Concomitant]
     Active Substance: CHLORPHENIRAMINE MALEATE
     Dosage: 10 MG
     Route: 042
     Dates: start: 20211005, end: 20211005
  16. CHLORPHENIRAMINE MALEATE [Concomitant]
     Active Substance: CHLORPHENIRAMINE MALEATE
     Dosage: 10 MG
     Route: 042
     Dates: start: 20211019, end: 20211019
  17. CHLORPHENIRAMINE MALEATE [Concomitant]
     Active Substance: CHLORPHENIRAMINE MALEATE
     Dosage: 10 MG
     Route: 042
     Dates: start: 20211026, end: 20211026
  18. CHLORPHENIRAMINE MALEATE [Concomitant]
     Active Substance: CHLORPHENIRAMINE MALEATE
     Dosage: 10 MG
     Route: 042
     Dates: start: 20211109, end: 20211109
  19. CHLORPHENIRAMINE MALEATE [Concomitant]
     Active Substance: CHLORPHENIRAMINE MALEATE
     Dosage: 10 MG
     Route: 042
     Dates: start: 20211116, end: 20211116
  20. DEXAMETHASONE [Concomitant]
     Active Substance: DEXAMETHASONE
     Dosage: 20 MG
     Route: 042
     Dates: start: 20210914, end: 20210914
  21. DEXAMETHASONE [Concomitant]
     Active Substance: DEXAMETHASONE
     Dosage: 20 MG
     Route: 042
     Dates: start: 20210921, end: 20210921
  22. DEXAMETHASONE [Concomitant]
     Active Substance: DEXAMETHASONE
     Dosage: 20 MG
     Route: 042
     Dates: start: 20211005, end: 20211005
  23. DEXAMETHASONE [Concomitant]
     Active Substance: DEXAMETHASONE
     Dosage: 20 MG
     Route: 042
     Dates: start: 20211026, end: 20211026
  24. DEXAMETHASONE [Concomitant]
     Active Substance: DEXAMETHASONE
     Dosage: 20 MG
     Route: 042
     Dates: start: 20211116, end: 20211116
  25. DEXAMETHASONE [Concomitant]
     Active Substance: DEXAMETHASONE
     Dosage: 20 MG
     Route: 042
     Dates: start: 20211207, end: 20211207
  26. DEXTROSE [Concomitant]
     Active Substance: DEXTROSE
     Dosage: UNK (HYDRATION)
     Route: 065
     Dates: start: 20210823, end: 20210823
  27. ENOXAPARIN [Concomitant]
     Active Substance: ENOXAPARIN
     Dosage: UNK (PROPHYLACTIC ANTI-COAGULANT)
     Route: 065
     Dates: start: 20210823, end: 20210823
  28. HYDROCORTISONE [Concomitant]
     Active Substance: HYDROCORTISONE
     Indication: Infusion related reaction
     Dosage: UNK
     Route: 065
     Dates: start: 20210817, end: 20210817
  29. LANSOPRAZOLE [Concomitant]
     Active Substance: LANSOPRAZOLE
     Dosage: ANTI ACID DUE TO STERIODS
     Route: 065
     Dates: start: 20210816
  30. LANSOPRAZOLE [Concomitant]
     Active Substance: LANSOPRAZOLE
     Dosage: UNK
     Route: 065
     Dates: start: 20210817
  31. METHYLPREDNISOLONE [Concomitant]
     Active Substance: METHYLPREDNISOLONE
     Indication: Premedication
     Dosage: 80 MG (PREMEDICATION)
     Route: 042
     Dates: start: 20210817, end: 20210817
  32. METHYLPREDNISOLONE [Concomitant]
     Active Substance: METHYLPREDNISOLONE
     Dosage: 80 MG
     Route: 042
     Dates: start: 20210907, end: 20210907
  33. METHYLPREDNISOLONE [Concomitant]
     Active Substance: METHYLPREDNISOLONE
     Dosage: 80 MG
     Route: 042
     Dates: start: 20210928, end: 20210928
  34. METHYLPREDNISOLONE [Concomitant]
     Active Substance: METHYLPREDNISOLONE
     Dosage: 80 MG
     Route: 065
     Dates: start: 20211019, end: 20211019
  35. METHYLPREDNISOLONE [Concomitant]
     Active Substance: METHYLPREDNISOLONE
     Dosage: 80 MG
     Route: 065
     Dates: start: 20211109, end: 20211109
  36. METHYLPREDNISOLONE [Concomitant]
     Active Substance: METHYLPREDNISOLONE
     Dosage: 80 MG
     Route: 042
     Dates: start: 20211130, end: 20211130
  37. SODIUM CHLORIDE [Concomitant]
     Active Substance: SODIUM CHLORIDE
     Dosage: HYDRATION
     Route: 065
     Dates: start: 20210823, end: 20210823
  38. ONDANSETRON [Concomitant]
     Active Substance: ONDANSETRON
     Indication: Vomiting
     Dosage: UNK
     Route: 065
     Dates: start: 20210817
  39. ONDANSETRON [Concomitant]
     Active Substance: ONDANSETRON
     Indication: Nausea
     Dosage: UNK
     Route: 065
     Dates: start: 20210823, end: 20210823
  40. ONDANSETRON [Concomitant]
     Active Substance: ONDANSETRON
     Dosage: 8 MG
     Route: 065
     Dates: start: 20211019, end: 20211019
  41. ACETAMINOPHEN [Concomitant]
     Active Substance: ACETAMINOPHEN
     Indication: Back pain
     Dosage: 1000 MG
     Route: 048
     Dates: start: 20210817, end: 20210817
  42. ACETAMINOPHEN [Concomitant]
     Active Substance: ACETAMINOPHEN
     Dosage: 1000 MG
     Route: 048
     Dates: start: 20210823, end: 20210823
  43. ACETAMINOPHEN [Concomitant]
     Active Substance: ACETAMINOPHEN
     Dosage: 1000 MG
     Route: 048
     Dates: start: 20210907, end: 20210907
  44. ACETAMINOPHEN [Concomitant]
     Active Substance: ACETAMINOPHEN
     Dosage: 1000 MG
     Route: 048
     Dates: start: 20210914, end: 20210914
  45. ACETAMINOPHEN [Concomitant]
     Active Substance: ACETAMINOPHEN
     Dosage: 1000 MG
     Route: 048
     Dates: start: 20210921, end: 20210921
  46. ACETAMINOPHEN [Concomitant]
     Active Substance: ACETAMINOPHEN
     Dosage: 1000 MG
     Route: 048
     Dates: start: 20210928, end: 20210928
  47. ACETAMINOPHEN [Concomitant]
     Active Substance: ACETAMINOPHEN
     Dosage: 1000 MG
     Route: 048
     Dates: start: 20211005, end: 20211005
  48. ACETAMINOPHEN [Concomitant]
     Active Substance: ACETAMINOPHEN
     Dosage: 1000 MG
     Route: 065
     Dates: start: 20211019, end: 20211019
  49. ACETAMINOPHEN [Concomitant]
     Active Substance: ACETAMINOPHEN
     Dosage: 1000 MG
     Route: 048
     Dates: start: 20211026, end: 20211026
  50. ACETAMINOPHEN [Concomitant]
     Active Substance: ACETAMINOPHEN
     Dosage: 1000 MG
     Route: 048
     Dates: start: 20211109, end: 20211109
  51. ACETAMINOPHEN [Concomitant]
     Active Substance: ACETAMINOPHEN
     Dosage: 1000 MG
     Route: 048
     Dates: start: 20211116, end: 20211116
  52. ACETAMINOPHEN [Concomitant]
     Active Substance: ACETAMINOPHEN
     Dosage: 1000 MG
     Route: 048
     Dates: start: 20211130, end: 20211130
  53. ACETAMINOPHEN [Concomitant]
     Active Substance: ACETAMINOPHEN
     Dosage: 1000 MG
     Route: 048
     Dates: start: 20211207, end: 20211207
  54. CHLORPHENIRAMINE MALEATE [Concomitant]
     Active Substance: CHLORPHENIRAMINE MALEATE
     Indication: Infusion related reaction
     Dosage: UNK
     Route: 065
     Dates: start: 20210817, end: 20210817
  55. PREDNISOLONE [Concomitant]
     Active Substance: PREDNISOLONE
     Indication: Lymphadenitis
     Dosage: UNK
     Route: 065
     Dates: start: 20210816
  56. PREDNISOLONE [Concomitant]
     Active Substance: PREDNISOLONE
     Dosage: 1000 MG
     Route: 048
  57. CIPROFLOXACIN [Concomitant]
     Active Substance: CIPROFLOXACIN
     Dosage: UNK
     Route: 065
     Dates: start: 20211019
  58. CYCLOPHOSPHAMIDE [Concomitant]
     Active Substance: CYCLOPHOSPHAMIDE
     Indication: Premedication
     Dosage: 1600 MG
     Route: 065
     Dates: start: 20211019, end: 20211019
  59. DOCUSATE SODIUM [Concomitant]
     Active Substance: DOCUSATE SODIUM
     Indication: Constipation
     Dosage: UNK
     Route: 065
     Dates: start: 20210823
  60. DOMPERIDONE [Concomitant]
     Active Substance: DOMPERIDONE
     Dosage: UNK
     Route: 065
     Dates: start: 20211019
  61. DOXORUBICIN [Concomitant]
     Active Substance: DOXORUBICIN
     Indication: Premedication
     Dosage: 110 MG
     Route: 065
     Dates: start: 20211019, end: 20211019
  62. FILGRASTIM [Concomitant]
     Active Substance: FILGRASTIM
     Dosage: UNK
     Route: 065
     Dates: start: 20211019
  63. FLUCONAZOLE [Concomitant]
     Active Substance: FLUCONAZOLE
     Dosage: UNK
     Route: 065
     Dates: start: 20211019
  64. TRUXIMA [Concomitant]
     Active Substance: RITUXIMAB-ABBS
     Dosage: 800 MG
     Route: 065
     Dates: start: 20211019, end: 20211019
  65. VINCRISTINE [Concomitant]
     Active Substance: VINCRISTINE
     Indication: Premedication
     Dosage: 2 MG
     Route: 065
     Dates: start: 20211019, end: 20211019

REACTIONS (1)
  - Sepsis [Recovering/Resolving]

NARRATIVE: CASE EVENT DATE: 20210823
